FAERS Safety Report 7573369-7 (Version None)
Quarter: 2011Q2

REPORT INFORMATION
  Report Type: 
  Country: None (occurrence: None)
  Receive Date: 20110627
  Receipt Date: 20110622
  Transmission Date: 20111010
  Serious: Yes (Death, Other)
  Sender: FDA-Public Use
  Company Number: PHHY2011AU55529

PATIENT
  Sex: Male

DRUGS (2)
  1. PRISTIQ [Concomitant]
  2. CLOZAPINE [Suspect]
     Dosage: 400 MG, QD
     Dates: start: 19951107

REACTIONS (6)
  - DEATH [None]
  - SYNCOPE [None]
  - TOOTH DISORDER [None]
  - CARDIAC ARREST [None]
  - SOMNOLENCE [None]
  - DYSPNOEA [None]
